FAERS Safety Report 4569850-5 (Version None)
Quarter: 2005Q1

REPORT INFORMATION
  Report Type: 
  Country: None (occurrence: None)
  Receive Date: 20050203
  Receipt Date: 20050131
  Transmission Date: 20050727
  Serious: Yes (Other)
  Sender: FDA-Public Use
  Company Number: CA-MERCK-0502CAN00005

PATIENT
  Age: 50 Year
  Sex: Female

DRUGS (2)
  1. VIOXX [Suspect]
     Route: 048
     Dates: start: 20030901, end: 20040301
  2. VALDECOXIB [Concomitant]
     Route: 065
     Dates: start: 20040301, end: 20040901

REACTIONS (3)
  - ABDOMINAL PAIN UPPER [None]
  - INFARCTION [None]
  - MYOCARDIAL INFARCTION [None]
